FAERS Safety Report 5965262-8 (Version None)
Quarter: 2008Q4

REPORT INFORMATION
  Report Type: 
  Country: None (occurrence: None)
  Receive Date: 20081124
  Receipt Date: 20081124
  Transmission Date: 20090506
  Serious: No
  Sender: FDA-Public Use
  Company Number: None

PATIENT
  Age: 95 Year
  Sex: Female
  Weight: 63.5036 kg

DRUGS (1)
  1. MORPHINE SULFATE IR TABS 15MG ETHEX CORP. [Suspect]
     Indication: BACK PAIN
     Dosage: 1 DAILY PO
     Route: 048
     Dates: start: 20081027, end: 20081028

REACTIONS (1)
  - SEDATION [None]
